FAERS Safety Report 21147858 (Version 1)
Quarter: 2022Q3

REPORT INFORMATION
  Report Type: Spontaneous
  Country: US (occurrence: None)
  Receive Date: 20220729
  Receipt Date: 20220729
  Transmission Date: 20221026
  Serious: No
  Sender: FDA-Public Use
  Company Number: None

PATIENT
  Age: 79 Year
  Sex: Male
  Weight: 95.71 kg

DRUGS (14)
  1. CAPECITABINE [Suspect]
     Active Substance: CAPECITABINE
     Dosage: FREQUENCY : TWICE A DAY;?
     Route: 048
     Dates: start: 202206, end: 20220708
  2. AMLODIPINE [Concomitant]
     Active Substance: AMLODIPINE BESYLATE
  3. ATORVASTATIN [Concomitant]
     Active Substance: ATORVASTATIN
  4. MINERALS\VITAMINS [Concomitant]
     Active Substance: MINERALS\VITAMINS
  5. ELIQUIS [Concomitant]
     Active Substance: APIXABAN
  6. INVOKANA [Concomitant]
     Active Substance: CANAGLIFLOZIN
  7. LEVEMIR [Concomitant]
     Active Substance: INSULIN DETEMIR
  8. LISINOPRIL [Concomitant]
     Active Substance: LISINOPRIL
  9. MAGOX [Concomitant]
  10. METOPRLOL-HCTZ [Concomitant]
  11. NITROGLYCERIN [Concomitant]
     Active Substance: NITROGLYCERIN
  12. NOVOLOG [Concomitant]
     Active Substance: INSULIN ASPART
  13. POTASSIUM CHLORIDE [Concomitant]
     Active Substance: POTASSIUM CHLORIDE
  14. SILDENAFIL [Concomitant]
     Active Substance: SILDENAFIL

REACTIONS (2)
  - SARS-CoV-2 test positive [None]
  - Therapy interrupted [None]

NARRATIVE: CASE EVENT DATE: 20220708
